FAERS Safety Report 5330709-7 (Version None)
Quarter: 2007Q2

REPORT INFORMATION
  Report Type: 
  Country: None (occurrence: None)
  Receive Date: 20070522
  Receipt Date: 20070514
  Transmission Date: 20071010
  Serious: Yes (Other)
  Sender: FDA-Public Use
  Company Number: PHEH2007US07476

PATIENT
  Sex: Female

DRUGS (1)
  1. FEMARA [Suspect]
     Indication: BREAST CANCER
     Dates: start: 20070402, end: 20070422

REACTIONS (9)
  - DEPRESSION [None]
  - DISORIENTATION [None]
  - DRUG INTOLERANCE [None]
  - FEELING ABNORMAL [None]
  - HYPERSOMNIA [None]
  - IMPAIRED DRIVING ABILITY [None]
  - MENTAL IMPAIRMENT [None]
  - SOMNOLENCE [None]
  - SUICIDAL IDEATION [None]
